FAERS Safety Report 13024387 (Version 33)
Quarter: 2018Q3

REPORT INFORMATION
  Report Type: Report from Study
  Country: US (occurrence: US)
  Receive Date: 20161213
  Receipt Date: 20180813
  Transmission Date: 20181010
  Serious: Yes (Hospitalization, Other)
  Sender: FDA-Public Use
  Company Number: US-ACTELION-A-NJ2016-146650

PATIENT
  Age: 60 Year
  Sex: Female
  Weight: 100.23 kg

DRUGS (27)
  1. VELETRI [Suspect]
     Active Substance: EPOPROSTENOL
     Dosage: 79ML/DAY VERY 55 SEC
     Route: 042
     Dates: start: 20080424
  2. FUROSEMIDE. [Concomitant]
     Active Substance: FUROSEMIDE
     Dosage: 20 MG, QD
     Dates: start: 2008
  3. FOLIC ACID. [Concomitant]
     Active Substance: FOLIC ACID
     Dosage: 1200 MCG, QD
  4. SPIRONOLACTONE. [Concomitant]
     Active Substance: SPIRONOLACTONE
     Dosage: 25 MG, QD
     Dates: start: 2008
  5. IRON [Concomitant]
     Active Substance: IRON
     Dosage: 65 MG, BID
     Dates: start: 2012
  6. VELETRI [Suspect]
     Active Substance: EPOPROSTENOL
     Dosage: UNK
     Route: 042
  7. OPSUMIT [Suspect]
     Active Substance: MACITENTAN
     Indication: PULMONARY ARTERIAL HYPERTENSION
     Dosage: 10 MG, QD
     Route: 048
     Dates: start: 20140103
  8. SILDENAFIL. [Concomitant]
     Active Substance: SILDENAFIL
     Dosage: 20 MG, TID
  9. VITAMIN C [Concomitant]
     Active Substance: ASCORBIC ACID
     Dosage: 500 MG, UNK
     Dates: start: 2012
  10. VITAMIN B6 [Concomitant]
     Active Substance: PYRIDOXINE HYDROCHLORIDE
     Dosage: 100 MG, QD
  11. VELETRI [Suspect]
     Active Substance: EPOPROSTENOL
     Dosage: 41 NG/KG, PER MIN
     Route: 042
  12. REVATIO [Concomitant]
     Active Substance: SILDENAFIL CITRATE
  13. WARFARIN [Concomitant]
     Active Substance: WARFARIN
     Dosage: 5 MG, 4X PER WEEK
     Dates: start: 20000907
  14. WARFARIN [Concomitant]
     Active Substance: WARFARIN
     Dosage: 7.5 MG, 3X PER WEEK
  15. CELEBREX [Concomitant]
     Active Substance: CELECOXIB
     Dosage: 200 MG, BID
  16. FLUTICASONE. [Concomitant]
     Active Substance: FLUTICASONE
     Dosage: 15 MCG 2 SPRAYS AT NIGHT, PRN
  17. VELETRI [Suspect]
     Active Substance: EPOPROSTENOL
     Indication: PULMONARY ARTERIAL HYPERTENSION
     Dosage: 52 NG/KG, PER MIN
     Route: 042
  18. VELETRI [Suspect]
     Active Substance: EPOPROSTENOL
     Dosage: UNK
     Route: 042
     Dates: start: 20141204
  19. PANTOPRAZOLE [Concomitant]
     Active Substance: PANTOPRAZOLE
     Dosage: 40 MG, BID
     Dates: start: 1996
  20. POTASSIUM CHLORIDE. [Concomitant]
     Active Substance: POTASSIUM CHLORIDE
     Dosage: 40 MEQ, QD
     Dates: start: 2008
  21. CYCLOBENZAPRINE. [Concomitant]
     Active Substance: CYCLOBENZAPRINE
     Dosage: 5 MG, TID
     Dates: start: 20170914
  22. CALCIUM CITRATE WITH VITAMIN D [Concomitant]
     Active Substance: CALCIUM CITRATE\VITAMIN D
     Dosage: 6030/500 IU BID
     Dates: start: 200408
  23. OPSUMIT [Suspect]
     Active Substance: MACITENTAN
     Dosage: UNK
     Route: 048
  24. LYRICA [Concomitant]
     Active Substance: PREGABALIN
     Dosage: 150 MG, QD
     Dates: start: 2014
  25. VITAMIN B12 [Concomitant]
     Active Substance: CYANOCOBALAMIN
     Dosage: 2000 MCG, QD
  26. SELENIUM [Concomitant]
     Active Substance: SELENIUM
     Dosage: 200 MCG, QD
     Dates: start: 2016
  27. SYNTHROID [Concomitant]
     Active Substance: LEVOTHYROXINE SODIUM
     Dosage: 137 MCG, QD

REACTIONS (80)
  - Pain in jaw [Unknown]
  - Erythema [Unknown]
  - Fluid retention [Unknown]
  - Fatigue [Unknown]
  - Soft tissue mass [Unknown]
  - Eye swelling [Recovered/Resolved]
  - Exophthalmos [Recovered/Resolved]
  - Thyrotoxic crisis [Recovered/Resolved]
  - Chest discomfort [Unknown]
  - Heart rate increased [Unknown]
  - Malaise [Unknown]
  - Diarrhoea [Not Recovered/Not Resolved]
  - Pleural effusion [Unknown]
  - Nausea [Unknown]
  - Mucosal pain [Unknown]
  - Migraine [Unknown]
  - Pain in extremity [Unknown]
  - Skin discolouration [Unknown]
  - Bone pain [Unknown]
  - Post procedural haemorrhage [Unknown]
  - Oedema peripheral [Recovering/Resolving]
  - Medullary thyroid cancer [Unknown]
  - Invasive ductal breast carcinoma [Recovered/Resolved]
  - Gastroenteritis astroviral [Unknown]
  - Parosmia [Unknown]
  - Lacrimation increased [Unknown]
  - Weight decreased [Recovered/Resolved]
  - Weight increased [Not Recovered/Not Resolved]
  - Catheter site erythema [Unknown]
  - Catheter site pain [Unknown]
  - Rhinorrhoea [Unknown]
  - Dyspnoea exertional [Unknown]
  - Burning sensation [Unknown]
  - Nasal congestion [Not Recovered/Not Resolved]
  - Sinus disorder [Not Recovered/Not Resolved]
  - Sinusitis [Not Recovered/Not Resolved]
  - Basedow^s disease [Recovered/Resolved]
  - Ocular discomfort [Recovered/Resolved]
  - Breast tumour excision [Unknown]
  - Postoperative wound infection [Unknown]
  - Headache [Unknown]
  - Catheter site discharge [Unknown]
  - Catheter site scab [Unknown]
  - Pyrexia [Unknown]
  - Sneezing [Unknown]
  - Rash pruritic [Unknown]
  - Device related infection [Recovered/Resolved]
  - Sinus congestion [Unknown]
  - Onychoclasis [Unknown]
  - Swelling [Unknown]
  - Angioedema [Recovered/Resolved]
  - Rash generalised [Recovering/Resolving]
  - Palpitations [Unknown]
  - Hypersensitivity [Unknown]
  - Eyelid oedema [Unknown]
  - Coagulopathy [Unknown]
  - Mole excision [Unknown]
  - Skin burning sensation [Not Recovered/Not Resolved]
  - Alopecia [Not Recovered/Not Resolved]
  - Thyroidectomy [Unknown]
  - Pain [Not Recovered/Not Resolved]
  - Dyspnoea [Unknown]
  - Eye disorder [Not Recovered/Not Resolved]
  - Rash [Not Recovered/Not Resolved]
  - Peripheral swelling [Unknown]
  - Condition aggravated [Unknown]
  - Abdominal pain [Recovered/Resolved]
  - Multiple allergies [Unknown]
  - Lymphoedema [Unknown]
  - Lymphadenectomy [Unknown]
  - Wheelchair user [Recovered/Resolved]
  - Chest pain [Unknown]
  - Ear infection [Recovered/Resolved]
  - Salivary gland pain [Unknown]
  - Dermatitis contact [Recovered/Resolved]
  - Rash erythematous [Unknown]
  - Flushing [Not Recovered/Not Resolved]
  - Dizziness [Unknown]
  - Contusion [Unknown]
  - Haematoma [Recovered/Resolved]

NARRATIVE: CASE EVENT DATE: 201511
